FAERS Safety Report 12435770 (Version 1)
Quarter: 2016Q2

REPORT INFORMATION
  Report Type: Spontaneous
  Country: DE (occurrence: DE)
  Receive Date: 20160603
  Receipt Date: 20160603
  Transmission Date: 20160815
  Serious: Yes (Congenital Anomaly, Other)
  Sender: FDA-Public Use
  Company Number: GXKR2016DE002547

PATIENT

DRUGS (1)
  1. LAMOTRIGINE. [Suspect]
     Active Substance: LAMOTRIGINE
     Indication: DEPRESSION
     Dosage: 100 [MG/D ]
     Route: 064
     Dates: start: 20150620, end: 20160226

REACTIONS (3)
  - Congenital skin dimples [Unknown]
  - Hyperbilirubinaemia neonatal [Recovered/Resolved]
  - Bradycardia neonatal [Recovered/Resolved]

NARRATIVE: CASE EVENT DATE: 20160226
